FAERS Safety Report 14101756 (Version 2)
Quarter: 2017Q4

REPORT INFORMATION
  Report Type: Spontaneous
  Country: US (occurrence: US)
  Receive Date: 20171018
  Receipt Date: 20171103
  Transmission Date: 20180321
  Serious: Yes (Other)
  Sender: FDA-Public Use
  Company Number: US-DRREDDYS-USA/USA/17/0094040

PATIENT
  Sex: Female
  Weight: 43.6 kg

DRUGS (1)
  1. ZENATANE [Suspect]
     Active Substance: ISOTRETINOIN
     Indication: ACNE
     Route: 065
     Dates: start: 20160826, end: 20160927

REACTIONS (4)
  - Weight decreased [Unknown]
  - Depressed mood [Recovering/Resolving]
  - Abnormal behaviour [Recovering/Resolving]
  - Menstruation delayed [Unknown]
